FAERS Safety Report 11730468 (Version 1)
Quarter: 2015Q4

REPORT INFORMATION
  Report Type: Spontaneous
  Country: KR (occurrence: KR)
  Receive Date: 20151112
  Receipt Date: 20151112
  Transmission Date: 20160304
  Serious: Yes (Hospitalization)
  Sender: FDA-Public Use
  Company Number: KR-AMGEN-KORCT2015120177

PATIENT
  Age: 46 Year
  Sex: Female
  Weight: 54.5 kg

DRUGS (8)
  1. G-LASTA [Suspect]
     Active Substance: PEGFILGRASTIM
     Indication: FEBRILE NEUTROPENIA
     Dosage: 6 MG, 1X/3WEEKS
     Route: 058
     Dates: start: 20150913
  2. DOCETAXEL. [Concomitant]
     Active Substance: DOCETAXEL
     Dosage: 104 MG
     Route: 042
     Dates: start: 20151024, end: 20151024
  3. DOCETAXEL. [Concomitant]
     Active Substance: DOCETAXEL
     Dosage: 104 MG
     Route: 042
     Dates: start: 20150912, end: 20150912
  4. DOXORUBICIN [Concomitant]
     Active Substance: DOXORUBICIN
     Dosage: 68 MG
     Route: 042
     Dates: start: 20151024, end: 20151024
  5. CYCLOPHOSPHAMIDE. [Concomitant]
     Active Substance: CYCLOPHOSPHAMIDE
     Dosage: 675 MG
     Route: 042
     Dates: start: 20151024, end: 20151024
  6. G-LASTA [Suspect]
     Active Substance: PEGFILGRASTIM
     Dosage: 6 MG, 1X/3WEEKS
     Route: 058
     Dates: start: 20151025
  7. CYCLOPHOSPHAMIDE. [Concomitant]
     Active Substance: CYCLOPHOSPHAMIDE
     Dosage: 675 MG
     Route: 042
     Dates: start: 20150912, end: 20150912
  8. DOXORUBICIN [Concomitant]
     Active Substance: DOXORUBICIN
     Dosage: 68 MG
     Route: 042
     Dates: start: 20150912, end: 20150912

REACTIONS (1)
  - Neutropenia [Recovered/Resolved]

NARRATIVE: CASE EVENT DATE: 20151030
